FAERS Safety Report 17854405 (Version 1)
Quarter: 2020Q2

REPORT INFORMATION
  Report Type: Report from Study
  Country: NL (occurrence: IT)
  Receive Date: 20200603
  Receipt Date: 20200603
  Transmission Date: 20200714
  Serious: Yes (Hospitalization, Other)
  Sender: FDA-Public Use
  Company Number: IT-ASTELLAS-2020US017840

PATIENT
  Age: 53 Year
  Sex: Male

DRUGS (1)
  1. AMPHOTERICIN B, LIPOSOME [Suspect]
     Active Substance: AMPHOTERICIN B
     Indication: FUNGAL INFECTION
     Dosage: 1 DF, ONCE DAILY (AMBISOME 50 MG POLVERE PER CONCENTRATO PER SOLUZIONE PER INFUSIONE)
     Route: 042
     Dates: start: 20200316, end: 20200325

REACTIONS (2)
  - Cardiotoxicity [Recovering/Resolving]
  - Electrocardiogram QT prolonged [Recovering/Resolving]

NARRATIVE: CASE EVENT DATE: 20200324
